FAERS Safety Report 9210563 (Version 1)
Quarter: 2013Q2

REPORT INFORMATION
  Report Type: Report from Study
  Country: BR (occurrence: BR)
  Receive Date: 20130404
  Receipt Date: 20130404
  Transmission Date: 20140414
  Serious: Yes (Hospitalization, Other)
  Sender: FDA-Public Use
  Company Number: BR-ABBOTT-13P-020-1064136-00

PATIENT
  Age: 35 Year
  Sex: Male

DRUGS (3)
  1. HUMIRA [Suspect]
     Indication: CROHN^S DISEASE
     Route: 058
     Dates: start: 20130128
  2. HUMIRA [Suspect]
  3. AZATHIOPRINE [Suspect]
     Indication: PRODUCT USED FOR UNKNOWN INDICATION
     Dates: start: 20130128

REACTIONS (5)
  - Anal fistula [Recovering/Resolving]
  - Anal fistula [Recovering/Resolving]
  - Weight decreased [Unknown]
  - Crohn^s disease [Unknown]
  - Alopecia [Unknown]
